FAERS Safety Report 19067534 (Version 1)
Quarter: 2021Q1

REPORT INFORMATION
  Report Type: Spontaneous
  Country: US (occurrence: US)
  Receive Date: 20210329
  Receipt Date: 20210329
  Transmission Date: 20210420
  Serious: Yes (Hospitalization, Other)
  Sender: FDA-Public Use
  Company Number: US-GLAXOSMITHKLINE-US2021068810

PATIENT
  Sex: Female

DRUGS (2)
  1. NEBULIZER (NAME UNKNOWN) [Concomitant]
     Active Substance: DEVICE
     Indication: PNEUMONIA
     Dosage: UNK
  2. BREO ELLIPTA [Suspect]
     Active Substance: FLUTICASONE FUROATE\VILANTEROL TRIFENATATE
     Indication: BRONCHIECTASIS
     Dosage: 1 PUFF(S), 1D
     Route: 055
     Dates: start: 2020

REACTIONS (1)
  - Pneumonia [Unknown]

NARRATIVE: CASE EVENT DATE: 2020
